FAERS Safety Report 24025602 (Version 2)
Quarter: 2024Q3

REPORT INFORMATION
  Report Type: Report from Study
  Country: CN (occurrence: CN)
  Receive Date: 20240628
  Receipt Date: 20240710
  Transmission Date: 20241016
  Serious: No
  Sender: ROCHE
  Company Number: CN-ROCHE-3201104

PATIENT
  Age: 52 Year
  Sex: Male

DRUGS (2)
  1. ALECENSA [Suspect]
     Active Substance: ALECTINIB HYDROCHLORIDE
     Indication: Non-small cell lung cancer metastatic
     Dosage: 224CAPSULES/BOX, CAPSULE
     Route: 048
     Dates: start: 202108
  2. DENOSUMAB [Concomitant]
     Active Substance: DENOSUMAB
     Dosage: UNKNOWN THERAPY DETAILS

REACTIONS (6)
  - Face oedema [Recovering/Resolving]
  - Drug resistance [Unknown]
  - Gastroenteritis [Unknown]
  - Coronavirus test positive [Unknown]
  - Cough [Unknown]
  - Asthenia [Unknown]

NARRATIVE: CASE EVENT DATE: 20230611
